FAERS Safety Report 16859143 (Version 3)
Quarter: 2020Q3

REPORT INFORMATION
  Report Type: Other
  Country: US (occurrence: US)
  Receive Date: 20190926
  Receipt Date: 20200925
  Transmission Date: 20201102
  Serious: No
  Sender: FDA-Public Use
  Company Number: US-VERASTEM-2019-00157

PATIENT

DRUGS (2)
  1. COPIKTRA [Suspect]
     Active Substance: DUVELISIB
     Dosage: 15 MG, PRN
     Route: 048
     Dates: start: 202005
  2. COPIKTRA [Suspect]
     Active Substance: DUVELISIB
     Indication: B-CELL LYMPHOMA
     Dosage: 15 MG, BID
     Route: 048
     Dates: start: 20190829, end: 20200420

REACTIONS (11)
  - Prescribed underdose [Not Recovered/Not Resolved]
  - Rash pruritic [Recovered/Resolved]
  - Asthenia [Unknown]
  - Chills [Recovered/Resolved]
  - Emotional distress [Unknown]
  - Tearfulness [Unknown]
  - Inappropriate schedule of product administration [Not Recovered/Not Resolved]
  - Dyspnoea [Unknown]
  - Diarrhoea [Recovered/Resolved]
  - Feeling abnormal [Recovered/Resolved]
  - Anxiety [Unknown]

NARRATIVE: CASE EVENT DATE: 20190829
